FAERS Safety Report 9292716 (Version 1)
Quarter: 2013Q1

REPORT INFORMATION
  Report Type: Spontaneous
  Country: US (occurrence: None)
  Receive Date: 20121212
  Receipt Date: 20121212
  Transmission Date: 20140127
  Serious: No
  Sender: FDA-Public Use
  Company Number: 1210USA014255

PATIENT
  Sex: Female

DRUGS (2)
  1. PEG-INTRON [Suspect]
     Indication: HEPATITIS C
     Dates: start: 20010601, end: 20010901
  2. RIBAVIRIN [Suspect]
     Dates: start: 20010601, end: 20010901

REACTIONS (2)
  - White blood cell count decreased [None]
  - No therapeutic response [None]
